FAERS Safety Report 7957065-X (Version None)
Quarter: 2011Q4

REPORT INFORMATION
  Report Type: 
  Country: None (occurrence: None)
  Receive Date: 20111205
  Receipt Date: 20111201
  Transmission Date: 20120403
  Serious: Yes (Hospitalization)
  Sender: FDA-Public Use
  Company Number: CA-BAYER-2011-113565

PATIENT
  Age: 45 Year
  Sex: Female
  Weight: 65 kg

DRUGS (3)
  1. GADAVIST [Suspect]
     Indication: NUCLEAR MAGNETIC RESONANCE IMAGING
  2. GADAVIST [Suspect]
     Indication: GRIMACING
  3. GADAVIST [Suspect]
     Indication: MUSCLE TWITCHING

REACTIONS (6)
  - TONGUE DRY [None]
  - SNEEZING [None]
  - DRY THROAT [None]
  - HYPOAESTHESIA ORAL [None]
  - DYSPHONIA [None]
  - URTICARIA [None]
